FAERS Safety Report 4409586-4 (Version None)
Quarter: 2004Q3

REPORT INFORMATION
  Report Type: 
  Country: None (occurrence: None)
  Receive Date: 20040728
  Receipt Date: 20040716
  Transmission Date: 20050211
  Serious: Yes (Hospitalization)
  Sender: FDA-Public Use
  Company Number: PHBS2004CA09692

PATIENT
  Sex: Male

DRUGS (3)
  1. CLOZARIL [Suspect]
     Route: 048
  2. CLOZAPINE [Suspect]
     Dosage: 275 MG/D
     Route: 048
  3. PUFFER [Concomitant]
     Route: 065

REACTIONS (10)
  - ABDOMINAL PAIN UPPER [None]
  - ASTHENIA [None]
  - DEPRESSION [None]
  - DIZZINESS [None]
  - GALLBLADDER DISORDER [None]
  - HEPATOMEGALY [None]
  - HOT FLUSH [None]
  - MYALGIA [None]
  - SYNCOPE [None]
  - TREMOR [None]
